FAERS Safety Report 6763521-2 (Version None)
Quarter: 2010Q2

REPORT INFORMATION
  Report Type: 
  Country: None (occurrence: None)
  Receive Date: 20100610
  Receipt Date: 20100527
  Transmission Date: 20101027
  Serious: Yes (Other)
  Sender: FDA-Public Use
  Company Number: US-ASTRAZENECA-2010SE26722

PATIENT
  Sex: Male

DRUGS (7)
  1. SEROQUEL [Suspect]
     Dosage: 25-50 MG
     Route: 048
     Dates: start: 20040217, end: 20050217
  2. FOSINOPRIL SODIUM [Concomitant]
     Indication: BLOOD PRESSURE
     Dosage: ONE HALF TAB DAILY
     Dates: start: 20040312, end: 20050313
  3. SIMVASTATIN [Concomitant]
     Dosage: ONE HALF TAB AT NIGHT
     Dates: start: 20041220, end: 20050310
  4. AMLODIPINE [Concomitant]
     Indication: BLOOD PRESSURE
     Dates: start: 20091014
  5. CLONIDINE [Concomitant]
     Indication: BLOOD PRESSURE
     Dates: start: 20091014
  6. FUROSEMIDE [Concomitant]
     Dates: start: 20091014
  7. SERTRALINE HCL [Concomitant]
     Indication: DEPRESSION
     Dates: start: 20091014

REACTIONS (7)
  - ABDOMINAL HERNIA [None]
  - DEEP VEIN THROMBOSIS [None]
  - DIABETIC NEUROPATHY [None]
  - DIABETIC RETINOPATHY [None]
  - HYPERLIPIDAEMIA [None]
  - NEPHROSCLEROSIS [None]
  - OBESITY [None]
